FAERS Safety Report 12389864 (Version 1)
Quarter: 2016Q2

REPORT INFORMATION
  Report Type: Spontaneous
  Country: US (occurrence: US)
  Receive Date: 20160520
  Receipt Date: 20160520
  Transmission Date: 20160815
  Serious: No
  Sender: FDA-Public Use
  Company Number: US-MDT-ADR-2015-02333

PATIENT
  Age: 54 Year
  Sex: Female

DRUGS (2)
  1. BACLOFEN. [Suspect]
     Active Substance: BACLOFEN
     Route: 037
     Dates: start: 20151204
  2. BACLOFEN. [Suspect]
     Active Substance: BACLOFEN
     Dosage: 180.1 MCG/DAY
     Route: 037
     Dates: end: 20151204

REACTIONS (2)
  - Muscle spasticity [Unknown]
  - Muscle rigidity [Unknown]

NARRATIVE: CASE EVENT DATE: 201511
